FAERS Safety Report 12725727 (Version 2)
Quarter: 2016Q4

REPORT INFORMATION
  Report Type: Report from Study
  Country: US (occurrence: US)
  Receive Date: 20160908
  Receipt Date: 20161013
  Transmission Date: 20170207
  Serious: Yes (Other)
  Sender: FDA-Public Use
  Company Number: US-CELGENEUS-USA-2016090765

PATIENT
  Age: 77 Year
  Sex: Male
  Weight: 99.3 kg

DRUGS (4)
  1. PACKED RED BLOOD CELLS [Concomitant]
     Active Substance: HUMAN RED BLOOD CELL
     Indication: ANAEMIA
     Route: 065
  2. VIDAZA [Suspect]
     Active Substance: AZACITIDINE
     Dosage: 75% DOSING
     Route: 058
     Dates: start: 20151109, end: 20160629
  3. VIDAZA [Suspect]
     Active Substance: AZACITIDINE
     Dosage: 50% DOSING
     Route: 058
     Dates: start: 20160829
  4. VIDAZA [Suspect]
     Active Substance: AZACITIDINE
     Indication: MYELODYSPLASTIC SYNDROME
     Route: 058
     Dates: start: 20151012

REACTIONS (1)
  - Neutrophil count decreased [Not Recovered/Not Resolved]

NARRATIVE: CASE EVENT DATE: 20151019
